FAERS Safety Report 13096982 (Version 1)
Quarter: 2017Q1

REPORT INFORMATION
  Report Type: Spontaneous
  Country: US (occurrence: US)
  Receive Date: 20170106
  Receipt Date: 20170106
  Transmission Date: 20170428
  Serious: Yes (Other)
  Sender: FDA-Public Use
  Company Number: None

PATIENT
  Age: 32 Year
  Sex: Male

DRUGS (2)
  1. ABILIFY MAINTENA [Suspect]
     Active Substance: ARIPIPRAZOLE
     Indication: MANIA
     Dosage: ?          OTHER FREQUENCY:Q 28 DAYS;?
     Route: 030
     Dates: start: 20160226, end: 20161231
  2. DEPAKOTE [Concomitant]
     Active Substance: DIVALPROEX SODIUM

REACTIONS (3)
  - Bone pain [None]
  - Injection site pain [None]
  - Arthralgia [None]

NARRATIVE: CASE EVENT DATE: 20170105
